FAERS Safety Report 8386967-8 (Version None)
Quarter: 2012Q2

REPORT INFORMATION
  Report Type: 
  Country: None (occurrence: None)
  Receive Date: 20120525
  Receipt Date: 20120518
  Transmission Date: 20120825
  Serious: Yes (Other)
  Sender: FDA-Public Use
  Company Number: AU-JNJFOC-20120517773

PATIENT
  Sex: Male
  Weight: 100 kg

DRUGS (3)
  1. STELARA [Suspect]
     Indication: PSORIASIS
     Route: 058
     Dates: start: 20111111
  2. STELARA [Suspect]
     Route: 058
     Dates: start: 20111209
  3. STELARA [Suspect]
     Route: 058
     Dates: start: 20120302

REACTIONS (1)
  - WEIGHT DECREASED [None]
